FAERS Safety Report 24091166 (Version 1)
Quarter: 2024Q3

REPORT INFORMATION
  Report Type: Spontaneous
  Country: US (occurrence: None)
  Receive Date: 20240713
  Receipt Date: 20240713
  Transmission Date: 20241016
  Serious: Yes (Life-Threatening, Hospitalization, Disabling)
  Sender: Public
  Company Number: None

PATIENT
  Age: 65 Year
  Sex: Male
  Weight: 112.5 kg

DRUGS (1)
  1. ATIVAN [Suspect]
     Active Substance: LORAZEPAM
     Indication: Anxiety
     Dates: start: 20070401, end: 20100311

REACTIONS (14)
  - Thinking abnormal [None]
  - Suicidal behaviour [None]
  - Nonspecific reaction [None]
  - Poisoning [None]
  - Brain injury [None]
  - Fibromyalgia [None]
  - Impaired work ability [None]
  - Post-traumatic stress disorder [None]
  - Withdrawal syndrome [None]
  - Electric shock sensation [None]
  - Pain [None]
  - Fatigue [None]
  - Cognitive disorder [None]
  - Economic problem [None]

NARRATIVE: CASE EVENT DATE: 20100310
